FAERS Safety Report 5474680-6 (Version None)
Quarter: 2007Q4

REPORT INFORMATION
  Report Type: 
  Country: None (occurrence: None)
  Receive Date: 20071002
  Receipt Date: 20070926
  Transmission Date: 20080405
  Serious: Yes (Death)
  Sender: FDA-Public Use
  Company Number: PHBS2007JP16047

PATIENT

DRUGS (1)
  1. RITALIN [Suspect]

REACTIONS (1)
  - SUDDEN DEATH [None]
